FAERS Safety Report 25654598 (Version 3)
Quarter: 2025Q3

REPORT INFORMATION
  Report Type: Spontaneous
  Country: TN (occurrence: TN)
  Receive Date: 20250807
  Receipt Date: 20250814
  Transmission Date: 20251020
  Serious: Yes (Hospitalization, Other)
  Sender: PFIZER
  Company Number: TN-PFIZER INC-PV202500094608

PATIENT
  Age: 36 Year
  Sex: Female

DRUGS (1)
  1. MEDROXYPROGESTERONE ACETATE [Suspect]
     Active Substance: MEDROXYPROGESTERONE ACETATE
     Indication: Contraception

REACTIONS (3)
  - Syncope [Unknown]
  - Cerebrovascular accident [Recovering/Resolving]
  - Trismus [Recovering/Resolving]
